FAERS Safety Report 10048528 (Version 1)
Quarter: 2014Q1

REPORT INFORMATION
  Report Type: Spontaneous
  Country: US (occurrence: None)
  Receive Date: 20140306
  Receipt Date: 20140306
  Transmission Date: 20141002
  Serious: Yes (Hospitalization, Other)
  Sender: FDA-Public Use
  Company Number: 163-21880-12123476

PATIENT
  Age: 72 Year
  Sex: Female

DRUGS (3)
  1. REVLIMID [Suspect]
     Indication: PLASMA CELL MYELOMA
     Dosage: 21 IN 28 D
     Route: 048
     Dates: start: 20110916
  2. COUMADIN (WARFARIN SODIUM) [Suspect]
     Indication: DEEP VEIN THROMBOSIS
     Route: 048
     Dates: start: 201208
  3. LOVENOX (HEPARIN-FRACTION, SODIUM SALT) [Concomitant]

REACTIONS (5)
  - Deep vein thrombosis [None]
  - Diarrhoea [None]
  - Vomiting [None]
  - Nausea [None]
  - Contusion [None]
